FAERS Safety Report 4566417-X (Version None)
Quarter: 2005Q1

REPORT INFORMATION
  Report Type: 
  Country: None (occurrence: None)
  Receive Date: 20050128
  Receipt Date: 20050111
  Transmission Date: 20050727
  Serious: Yes (Hospitalization)
  Sender: FDA-Public Use
  Company Number: 2004BI001845

PATIENT
  Sex: Female
  Weight: 68.4932 kg

DRUGS (7)
  1. AVONEX [Suspect]
     Indication: MULTIPLE SCLEROSIS
  2. SYNTHROID [Concomitant]
  3. INSULIN [Concomitant]
  4. LISINOPRIL [Concomitant]
  5. AMITRIPTYLINE [Concomitant]
  6. ASPIRIN [Concomitant]
  7. WELLBUTRIN SR [Concomitant]

REACTIONS (5)
  - ADENOIDECTOMY [None]
  - COGNITIVE DETERIORATION [None]
  - HYSTERECTOMY [None]
  - MULTIPLE SCLEROSIS [None]
  - TONSILLECTOMY [None]
